FAERS Safety Report 4679170-6 (Version None)
Quarter: 2005Q2

REPORT INFORMATION
  Report Type: 
  Country: None (occurrence: None)
  Receive Date: 20050526
  Receipt Date: 20050215
  Transmission Date: 20051028
  Serious: Yes (Disabling)
  Sender: FDA-Public Use
  Company Number: WAES 0502USA02031

PATIENT
  Age: 81 Year
  Sex: Female

DRUGS (5)
  1. VYTORIN [Suspect]
     Indication: BLOOD CHOLESTEROL INCREASED
     Dosage: 10-20 MG/DAILY/PO
     Route: 048
     Dates: end: 20050211
  2. CELEBREX [Concomitant]
  3. EFFEXOR [Concomitant]
  4. ZYPREXA [Concomitant]
  5. LITHIUM SULFATE [Concomitant]

REACTIONS (1)
  - BACK PAIN [None]
